FAERS Safety Report 7218768-8 (Version None)
Quarter: 2011Q1

REPORT INFORMATION
  Report Type: 
  Country: None (occurrence: None)
  Receive Date: 20110110
  Receipt Date: 20100412
  Transmission Date: 20110831
  Serious: No
  Sender: FDA-Public Use
  Company Number: US-ABBOTT-10P-163-0638854-00

PATIENT
  Sex: Female

DRUGS (3)
  1. AMOXICILLIN [Concomitant]
     Indication: PROPHYLAXIS
     Route: 048
     Dates: start: 20100406
  2. AMOXICILLIN [Concomitant]
     Indication: SURGERY
  3. VICODIN [Suspect]
     Indication: PROCEDURAL PAIN
     Dosage: 5/500 MG
     Route: 048
     Dates: start: 20100406, end: 20100410

REACTIONS (2)
  - VOMITING [None]
  - PYREXIA [None]
